FAERS Safety Report 15432847 (Version 2)
Quarter: 2018Q4

REPORT INFORMATION
  Report Type: Report from Study
  Country: US (occurrence: US)
  Receive Date: 20180927
  Receipt Date: 20181020
  Transmission Date: 20190204
  Serious: No
  Sender: FDA-Public Use
  Company Number: PHEH2018US040425

PATIENT
  Sex: Male
  Weight: 107.48 kg

DRUGS (1)
  1. COSENTYX [Suspect]
     Active Substance: SECUKINUMAB
     Indication: ANKYLOSING SPONDYLITIS
     Dosage: 150 MG, QMO
     Route: 058
     Dates: start: 201708

REACTIONS (5)
  - Pain [Unknown]
  - Fall [Unknown]
  - Head injury [Unknown]
  - Arthropod bite [Unknown]
  - Drug ineffective [Unknown]
